FAERS Safety Report 19346456 (Version 1)
Quarter: 2021Q2

REPORT INFORMATION
  Report Type: Spontaneous
  Country: US (occurrence: US)
  Receive Date: 20210531
  Receipt Date: 20210531
  Transmission Date: 20210717
  Serious: Yes (Other)
  Sender: FDA-Public Use
  Company Number: US-PURDUE-USA-2020-0204387

PATIENT
  Sex: Male

DRUGS (1)
  1. OXYCONTIN [Suspect]
     Active Substance: OXYCODONE HYDROCHLORIDE
     Indication: PRODUCT USED FOR UNKNOWN INDICATION
     Dosage: UNK
     Route: 048
     Dates: start: 200611

REACTIONS (7)
  - Drug dependence [Unknown]
  - Gastrointestinal injury [Unknown]
  - Nausea [Unknown]
  - Functional gastrointestinal disorder [Unknown]
  - Depression [Unknown]
  - Pain [Unknown]
  - Withdrawal syndrome [Unknown]
